FAERS Safety Report 20523730 (Version 1)
Quarter: 2022Q1

REPORT INFORMATION
  Report Type: Report from Study
  Country: US (occurrence: US)
  Receive Date: 20220228
  Receipt Date: 20220228
  Transmission Date: 20220423
  Serious: Yes (Other)
  Sender: FDA-Public Use
  Company Number: US-BRISTOL-MYERS SQUIBB COMPANY-BMS-2022-026672

PATIENT
  Age: 60 Year
  Sex: Female
  Weight: 68.027 kg

DRUGS (6)
  1. ABATACEPT [Suspect]
     Active Substance: ABATACEPT
     Indication: Rheumatoid arthritis
     Dosage: UNK, QWK
     Route: 050
     Dates: start: 202112
  2. TYLENOL [Suspect]
     Active Substance: ACETAMINOPHEN
     Indication: Pain
     Dosage: 2 TABLETS, AS NEEDED
     Route: 065
  3. IBUPROFEN [Concomitant]
     Active Substance: IBUPROFEN
     Indication: Pain
     Dosage: 800 MILLIGRAM, AS NEEDED
     Route: 065
  4. GABAPENTIN [Concomitant]
     Active Substance: GABAPENTIN
     Indication: Product used for unknown indication
     Dosage: UNK
     Route: 065
  5. TRAZODONE [Concomitant]
     Active Substance: TRAZODONE HYDROCHLORIDE
     Indication: Product used for unknown indication
     Dosage: UNK
     Route: 065
  6. REMICADE [Concomitant]
     Active Substance: INFLIXIMAB
     Indication: Rheumatoid arthritis
     Dosage: UNK
     Route: 065

REACTIONS (6)
  - Back pain [Not Recovered/Not Resolved]
  - Gait disturbance [Recovering/Resolving]
  - COVID-19 [Recovered/Resolved]
  - Injection site bruising [Unknown]
  - Hepatic enzyme increased [Unknown]
  - Device difficult to use [Recovering/Resolving]

NARRATIVE: CASE EVENT DATE: 20220101
